FAERS Safety Report 7609541 (Version 3)
Quarter: 2014Q1

REPORT INFORMATION
  Report Type: Spontaneous
  Country: US (occurrence: US)
  Receive Date: 20100928
  Receipt Date: 20140117
  Transmission Date: 20141002
  Serious: Yes (Hospitalization, Other)
  Sender: FDA-Public Use
  Company Number: US-BAYER-201034601NA

PATIENT
  Age: 46 Year
  Sex: Female
  Weight: 63.49 kg

DRUGS (7)
  1. YASMIN [Suspect]
     Dosage: UNK
     Route: 048
     Dates: start: 200109, end: 20070615
  2. SYNTHROID [Concomitant]
     Indication: HYPOTHYROIDISM
  3. ALLEGRA [Concomitant]
     Indication: MULTIPLE ALLERGIES
  4. NEXIUM [Concomitant]
     Indication: GASTROOESOPHAGEAL REFLUX DISEASE
  5. CALCIUM [CALCIUM] [Concomitant]
  6. CENTRUM [MINERALS NOS,VITAMINS NOS] [Concomitant]
  7. LYSINE [Concomitant]

REACTIONS (3)
  - Gallbladder disorder [None]
  - Biliary tract disorder [None]
  - Cholecystitis [None]
